FAERS Safety Report 25570780 (Version 1)
Quarter: 2025Q3

REPORT INFORMATION
  Report Type: Spontaneous
  Country: EU (occurrence: EU)
  Receive Date: 20250717
  Receipt Date: 20250717
  Transmission Date: 20251020
  Serious: Yes (Death, Other)
  Sender: AZURITY PHARMACEUTICALS
  Company Number: EU-AZURITY PHARMACEUTICALS, INC.-AZR202507-001908

PATIENT
  Age: 31 Year
  Sex: Female
  Weight: 63 kg

DRUGS (1)
  1. AMPHETAMINE SULFATE [Suspect]
     Active Substance: AMPHETAMINE SULFATE
     Indication: Product used for unknown indication
     Route: 042

REACTIONS (8)
  - Aorto-cardiac fistula [Fatal]
  - Cardiac tamponade [Fatal]
  - Endocarditis [Fatal]
  - Pericarditis infective [Fatal]
  - Streptococcal bacteraemia [Fatal]
  - Foetal death [Not Recovered/Not Resolved]
  - Drug dependence [Fatal]
  - Exposure during pregnancy [Unknown]
